FAERS Safety Report 6417493-0 (Version None)
Quarter: 2009Q4

REPORT INFORMATION
  Report Type: 
  Country: None (occurrence: None)
  Receive Date: 20091028
  Receipt Date: 20091019
  Transmission Date: 20100525
  Serious: Yes (Hospitalization)
  Sender: FDA-Public Use
  Company Number: JP-ABBOTT-09P-087-0595504-00

PATIENT
  Sex: Male
  Weight: 48 kg

DRUGS (25)
  1. HUMIRA [Suspect]
     Indication: RHEUMATOID ARTHRITIS
     Route: 058
     Dates: start: 20080901
  2. TACROLIMUS [Concomitant]
     Indication: RHEUMATOID ARTHRITIS
     Dates: start: 20080930, end: 20081027
  3. TACROLIMUS [Concomitant]
     Dates: start: 20081028, end: 20081126
  4. TACROLIMUS [Concomitant]
     Dates: start: 20081127, end: 20081225
  5. TACROLIMUS [Concomitant]
     Dates: start: 20081226
  6. SALAZOSULFAPYRIDINE [Concomitant]
     Indication: RHEUMATOID ARTHRITIS
     Dates: start: 20090122
  7. PREDNISOLONE [Concomitant]
     Indication: RHEUMATOID ARTHRITIS
     Route: 048
     Dates: end: 20080901
  8. PREDNISOLONE [Concomitant]
     Route: 048
     Dates: start: 20080902, end: 20080929
  9. PREDNISOLONE [Concomitant]
     Route: 048
     Dates: start: 20080930, end: 20081027
  10. PREDNISOLONE [Concomitant]
     Route: 048
     Dates: start: 20081028, end: 20081126
  11. PREDNISOLONE [Concomitant]
     Route: 048
     Dates: start: 20081127, end: 20081225
  12. PREDNISOLONE [Concomitant]
     Route: 048
     Dates: start: 20081226, end: 20090121
  13. PREDNISOLONE [Concomitant]
     Route: 048
     Dates: start: 20090122, end: 20090205
  14. PREDNISOLONE [Concomitant]
     Route: 048
     Dates: start: 20090206, end: 20090220
  15. PREDNISOLONE [Concomitant]
     Route: 048
     Dates: start: 20090221, end: 20090307
  16. PREDNISOLONE [Concomitant]
     Route: 048
     Dates: start: 20090308
  17. CELECOXIB [Concomitant]
     Indication: RHEUMATOID ARTHRITIS
     Dates: start: 20080826
  18. SODIUM RISEDRONATE HYDRATE [Concomitant]
     Indication: ADVERSE REACTION
     Dates: start: 20080826
  19. SODIUM RISEDRONATE HYDRATE [Concomitant]
     Indication: PROPHYLAXIS
  20. RABEPRAZOLE SODIUM [Concomitant]
     Indication: PROPHYLAXIS
     Dates: start: 20080901
  21. RABEPRAZOLE SODIUM [Concomitant]
     Indication: ADVERSE EVENT
  22. MILNACIPRAN HYDROCHLORIDE [Concomitant]
     Indication: DRUG USE FOR UNKNOWN INDICATION
     Dates: start: 20090417
  23. ISONIAZID [Concomitant]
     Indication: ANTIBIOTIC PROPHYLAXIS
     Dates: start: 20080901, end: 20090514
  24. PYRIDOXAL PHOSPHATE [Concomitant]
     Indication: ADVERSE REACTION
     Dates: start: 20080901, end: 20090514
  25. PYRIDOXAL PHOSPHATE [Concomitant]
     Indication: PROPHYLAXIS

REACTIONS (1)
  - SPINAL COMPRESSION FRACTURE [None]
